FAERS Safety Report 20966391 (Version 1)
Quarter: 2022Q2

REPORT INFORMATION
  Report Type: Spontaneous
  Country: US (occurrence: US)
  Receive Date: 20220616
  Receipt Date: 20220616
  Transmission Date: 20220720
  Serious: No
  Sender: FDA-Public Use
  Company Number: US-009507513-2206USA002733

PATIENT
  Sex: Male

DRUGS (1)
  1. JANUMET [Suspect]
     Active Substance: METFORMIN HYDROCHLORIDE\SITAGLIPTIN PHOSPHATE
     Dosage: 1 TABLET (50/1000 MG) DAILY
     Route: 048
     Dates: start: 202106

REACTIONS (4)
  - Intentional product misuse [Unknown]
  - Product prescribing issue [Unknown]
  - Inability to afford medication [Unknown]
  - No adverse event [Unknown]

NARRATIVE: CASE EVENT DATE: 20210601
